FAERS Safety Report 5249819-8 (Version None)
Quarter: 2007Q1

REPORT INFORMATION
  Report Type: 
  Country: None (occurrence: None)
  Receive Date: 20070223
  Receipt Date: 20070214
  Transmission Date: 20070707
  Serious: Yes (Death, Life-Threatening)
  Sender: FDA-Public Use
  Company Number: 062-20785-06060539

PATIENT
  Age: 57 Year
  Sex: Male

DRUGS (3)
  1. THALIDOMIDE [Suspect]
     Indication: AMYOTROPHIC LATERAL SCLEROSIS
     Dosage: SEE IMAGE
     Route: 048
     Dates: start: 20060220, end: 20060508
  2. THALIDOMIDE [Suspect]
     Indication: AMYOTROPHIC LATERAL SCLEROSIS
     Dosage: SEE IMAGE
     Route: 048
     Dates: start: 20060508, end: 20060612
  3. RILUTEK [Concomitant]

REACTIONS (10)
  - ARTERIOSCLEROSIS [None]
  - ASTHENIA [None]
  - BRADYCARDIA [None]
  - CONSTIPATION [None]
  - COR PULMONALE [None]
  - CORONARY ARTERY STENOSIS [None]
  - DIZZINESS [None]
  - EMPHYSEMA [None]
  - POLYNEUROPATHY [None]
  - SUDDEN CARDIAC DEATH [None]
